FAERS Safety Report 7988495-8 (Version None)
Quarter: 2011Q4

REPORT INFORMATION
  Report Type: 
  Country: None (occurrence: None)
  Receive Date: 20111216
  Receipt Date: 20111207
  Transmission Date: 20120403
  Serious: Yes (Hospitalization, Other)
  Sender: FDA-Public Use
  Company Number: US-ASTRAZENECA-2011SE74333

PATIENT
  Age: 54 Year
  Sex: Female

DRUGS (2)
  1. NEXIUM [Concomitant]
     Route: 048
  2. CRESTOR [Suspect]
     Route: 048

REACTIONS (4)
  - NERVOUS SYSTEM DISORDER [None]
  - HAEMATOMA [None]
  - BURNING SENSATION [None]
  - PYREXIA [None]
